FAERS Safety Report 6925612-2 (Version None)
Quarter: 2010Q3

REPORT INFORMATION
  Report Type: 
  Country: None (occurrence: None)
  Receive Date: 20100816
  Receipt Date: 20100806
  Transmission Date: 20110219
  Serious: Yes (Other)
  Sender: FDA-Public Use
  Company Number: IT-AMGEN-QUU430145

PATIENT
  Sex: Male

DRUGS (3)
  1. ENBREL [Suspect]
     Indication: PRODUCT USED FOR UNKNOWN INDICATION
     Dosage: 50 MG WEEKLY
     Dates: start: 20070808, end: 20080915
  2. HUMIRA [Suspect]
     Dosage: 40 MG EVERY 1 CYC
     Dates: start: 20090116, end: 20090930
  3. APROVEL [Concomitant]
     Dosage: 300 MG
     Route: 048

REACTIONS (1)
  - PROSTATE CANCER [None]
